FAERS Safety Report 5146814-4 (Version None)
Quarter: 2006Q4

REPORT INFORMATION
  Report Type: 
  Country: None (occurrence: None)
  Receive Date: 20061109
  Receipt Date: 20061006
  Transmission Date: 20070319
  Serious: Yes (Hospitalization)
  Sender: FDA-Public Use
  Company Number: PHBS2006CH15542

PATIENT
  Age: 76 Year
  Sex: Male

DRUGS (1)
  1. AREDIA [Suspect]
     Indication: CALCIUM METABOLISM DISORDER
     Dosage: 90 MG, QMO
     Route: 042
     Dates: start: 20040101, end: 20060601

REACTIONS (5)
  - BLOOD CREATININE INCREASED [None]
  - FOCAL GLOMERULOSCLEROSIS [None]
  - NEPHROSCLEROSIS [None]
  - RENAL FAILURE ACUTE [None]
  - RENAL FAILURE CHRONIC [None]
